FAERS Safety Report 17318639 (Version 1)
Quarter: 2020Q1

REPORT INFORMATION
  Report Type: Spontaneous
  Country: US (occurrence: US)
  Receive Date: 20200124
  Receipt Date: 20200124
  Transmission Date: 20200409
  Serious: Yes (Death, Life-Threatening, Hospitalization, Other)
  Sender: FDA-Public Use
  Company Number: US-ASTRAZENECA-2020SE10583

PATIENT
  Age: 42 Year
  Sex: Female

DRUGS (2)
  1. QUETIAPINE. [Suspect]
     Active Substance: QUETIAPINE
     Route: 048
  2. MORPHINE [Suspect]
     Active Substance: MORPHINE
     Route: 048

REACTIONS (4)
  - Cardiac arrest [Unknown]
  - Toxicity to various agents [Fatal]
  - Medication error [Fatal]
  - Respiratory arrest [Unknown]
